FAERS Safety Report 8379089-3 (Version None)
Quarter: 2012Q1

REPORT INFORMATION
  Report Type: 
  Country: None (occurrence: None)
  Receive Date: 20120323
  Receipt Date: 20111027
  Transmission Date: 20120608
  Serious: Yes (Other)
  Sender: FDA-Public Use
  Company Number: 163-21880-11032811

PATIENT
  Age: 50 Year
  Sex: Female

DRUGS (5)
  1. VICODIN [Concomitant]
  2. REVLIMID [Suspect]
     Indication: 5Q MINUS SYNDROME
     Dosage: 5 MG, DAILY X 21 DAYS, PO 5 MG, DAILY X 21 DAYS, PO
     Route: 048
     Dates: start: 20110323
  3. REVLIMID [Suspect]
     Indication: 5Q MINUS SYNDROME
     Dosage: 5 MG, DAILY X 21 DAYS, PO 5 MG, DAILY X 21 DAYS, PO
     Route: 048
     Dates: start: 20101123
  4. ATIVAN [Concomitant]
  5. TYLENOL 8 (PARACETAMOL) (UNKNOWN) [Concomitant]

REACTIONS (2)
  - GENERALISED OEDEMA [None]
  - HYPERSENSITIVITY [None]
